FAERS Safety Report 4534272-X (Version None)
Quarter: 2004Q4

REPORT INFORMATION
  Report Type: 
  Country: None (occurrence: None)
  Receive Date: 20041214
  Receipt Date: 20040825
  Transmission Date: 20050328
  Serious: No
  Sender: FDA-Public Use
  Company Number: 2004231419US

PATIENT
  Sex: Female
  Weight: 49.9 kg

DRUGS (1)
  1. BEXTRA [Suspect]

REACTIONS (3)
  - DRUG INEFFECTIVE [None]
  - RENAL PAIN [None]
  - URINE ANALYSIS ABNORMAL [None]
